FAERS Safety Report 12983544 (Version 1)
Quarter: 2016Q4

REPORT INFORMATION
  Report Type: Spontaneous
  Country: DE (occurrence: DE)
  Receive Date: 20161129
  Receipt Date: 20161129
  Transmission Date: 20170207
  Serious: Yes (Hospitalization, Disabling)
  Sender: FDA-Public Use
  Company Number: DE-MYLANLABS-2016M1051649

PATIENT

DRUGS (5)
  1. RAMIPRIL. [Concomitant]
     Active Substance: RAMIPRIL
     Indication: PRODUCT USED FOR UNKNOWN INDICATION
     Dosage: UNK
  2. DHEA [Concomitant]
     Active Substance: PRASTERONE
     Indication: PRODUCT USED FOR UNKNOWN INDICATION
     Dosage: 25 MG, UNK
  3. SIMVASTATIN. [Suspect]
     Active Substance: SIMVASTATIN
     Indication: PRODUCT USED FOR UNKNOWN INDICATION
     Dosage: 40 MG, UNK
  4. ASPIRIN. [Concomitant]
     Active Substance: ASPIRIN
     Indication: PRODUCT USED FOR UNKNOWN INDICATION
  5. MELACRON [Concomitant]
     Indication: PRODUCT USED FOR UNKNOWN INDICATION
     Dosage: 3 MG, UNK

REACTIONS (1)
  - Muscle rupture [Not Recovered/Not Resolved]

NARRATIVE: CASE EVENT DATE: 20161108
